FAERS Safety Report 6880772-7 (Version None)
Quarter: 2010Q3

REPORT INFORMATION
  Report Type: 
  Country: None (occurrence: None)
  Receive Date: 20100728
  Receipt Date: 20100625
  Transmission Date: 20110219
  Serious: Yes (Death, Other)
  Sender: FDA-Public Use
  Company Number: US-BAXTER-2010BH003524

PATIENT
  Age: 34 Year
  Sex: Female

DRUGS (13)
  1. HEPARIN SODIUM [Suspect]
     Indication: ARTERIOVENOUS FISTULA OPERATION
     Route: 065
  2. HEPARIN SODIUM [Suspect]
     Indication: ANTICOAGULANT THERAPY
     Route: 065
  3. HEPARIN SODIUM [Suspect]
     Route: 042
     Dates: start: 20080714, end: 20080714
  4. HEPARIN SODIUM [Suspect]
     Route: 042
     Dates: start: 20080714, end: 20080714
  5. LISINOPRIL [Concomitant]
     Indication: PRODUCT USED FOR UNKNOWN INDICATION
     Route: 065
     Dates: end: 20080714
  6. CLONIDINE [Concomitant]
     Indication: PRODUCT USED FOR UNKNOWN INDICATION
     Route: 065
     Dates: end: 20080714
  7. ZYVOX [Concomitant]
     Indication: PREOPERATIVE CARE
     Route: 048
  8. LEVAQUIN [Concomitant]
     Indication: PREOPERATIVE CARE
     Route: 048
  9. ROBINUL [Concomitant]
     Indication: PREOPERATIVE CARE
     Route: 042
  10. MARCAINE                                /USA/ [Concomitant]
     Indication: PRODUCT USED FOR UNKNOWN INDICATION
     Route: 065
     Dates: start: 20080714, end: 20080714
  11. LIDOCAINE [Concomitant]
     Indication: ANAESTHESIA
     Route: 065
     Dates: start: 20080714, end: 20080714
  12. PROPOFOL [Concomitant]
     Indication: ANAESTHESIA
     Route: 065
     Dates: start: 20080714, end: 20080714
  13. FENTANYL [Concomitant]
     Indication: ANAESTHESIA
     Route: 065
     Dates: start: 20080714, end: 20080714

REACTIONS (3)
  - BRADYCARDIA [None]
  - CARDIAC ARREST [None]
  - HYPOTENSION [None]
